FAERS Safety Report 13841311 (Version 1)
Quarter: 2017Q3

REPORT INFORMATION
  Report Type: Spontaneous
  Country: MA (occurrence: MA)
  Receive Date: 20170807
  Receipt Date: 20170807
  Transmission Date: 20171127
  Serious: Yes (Other)
  Sender: FDA-Public Use
  Company Number: MA-ELI_LILLY_AND_COMPANY-MA201708000786

PATIENT
  Age: 69 Year
  Sex: Male

DRUGS (1)
  1. PEMETREXED. [Suspect]
     Active Substance: PEMETREXED
     Indication: LUNG ADENOCARCINOMA
     Dosage: 500 MG/M2, CYCLICAL
     Route: 065

REACTIONS (3)
  - Renal tubular necrosis [Recovering/Resolving]
  - Acute kidney injury [Recovering/Resolving]
  - Kidney fibrosis [Recovering/Resolving]
